FAERS Safety Report 13204609 (Version 1)
Quarter: 2017Q1

REPORT INFORMATION
  Report Type: Spontaneous
  Country: US (occurrence: US)
  Receive Date: 20170208
  Receipt Date: 20170208
  Transmission Date: 20170428
  Serious: No
  Sender: FDA-Public Use
  Company Number: None

PATIENT
  Age: 77 Year
  Sex: Female
  Weight: 47.63 kg

DRUGS (11)
  1. GLUCOSAMINE + MSM [Concomitant]
  2. VITAMIN D [Concomitant]
     Active Substance: CHOLECALCIFEROL
  3. FISH OIL [Concomitant]
     Active Substance: FISH OIL
  4. IBANDRONATE SODIUM. [Suspect]
     Active Substance: IBANDRONATE SODIUM
     Indication: OSTEOPOROSIS
     Route: 048
     Dates: start: 201511, end: 201608
  5. MULTIVITAMIN [Concomitant]
     Active Substance: VITAMINS
  6. VITAMIN E [Concomitant]
     Active Substance: .ALPHA.-TOCOPHEROL
  7. MONTELUKAST [Concomitant]
     Active Substance: MONTELUKAST SODIUM
  8. GINKO BILOBA [Concomitant]
     Active Substance: GINKGO
  9. VENTOLIN [Concomitant]
     Active Substance: ALBUTEROL SULFATE
  10. CALCIUM [Concomitant]
     Active Substance: CALCIUM
  11. TUMERIC [Concomitant]
     Active Substance: TURMERIC

REACTIONS (15)
  - Abdominal discomfort [None]
  - Condition aggravated [None]
  - Dyspepsia [None]
  - Vision blurred [None]
  - Syncope [None]
  - Feeling abnormal [None]
  - Visual impairment [None]
  - Hypertension [None]
  - Chondrocalcinosis pyrophosphate [None]
  - Movement disorder [None]
  - Dizziness [None]
  - Asthma [None]
  - Asthenia [None]
  - Back disorder [None]
  - Gait disturbance [None]

NARRATIVE: CASE EVENT DATE: 201511
